FAERS Safety Report 13174950 (Version 1)
Quarter: 2017Q1

REPORT INFORMATION
  Report Type: Spontaneous
  Country: US (occurrence: US)
  Receive Date: 20170201
  Receipt Date: 20170201
  Transmission Date: 20170428
  Serious: No
  Sender: FDA-Public Use
  Company Number: US-ABBVIE-16K-163-1798382-00

PATIENT
  Age: 87 Year
  Sex: Female
  Weight: 78.54 kg

DRUGS (6)
  1. CYMBALTA (NON-ABBVIE) [Concomitant]
     Indication: NEUROPATHY PERIPHERAL
  2. HUMIRA [Suspect]
     Active Substance: ADALIMUMAB
     Route: 058
     Dates: start: 2013
  3. VITAMIN B12 (NON-ABBVIE) [Concomitant]
     Indication: PRODUCT USED FOR UNKNOWN INDICATION
  4. METFORMIN (NON-ABBVIE) [Concomitant]
     Indication: DIABETES MELLITUS
  5. HUMIRA [Suspect]
     Active Substance: ADALIMUMAB
     Indication: RHEUMATOID ARTHRITIS
     Route: 058
     Dates: start: 2013, end: 2013
  6. LOSARTAN (NON-ABBVIE) [Concomitant]
     Indication: HYPERTENSION

REACTIONS (3)
  - Incorrect dose administered [Recovered/Resolved]
  - Neoplasm skin [Recovered/Resolved]
  - Device issue [Recovered/Resolved]

NARRATIVE: CASE EVENT DATE: 2013
